FAERS Safety Report 7622025-5 (Version None)
Quarter: 2011Q3

REPORT INFORMATION
  Report Type: 
  Country: None (occurrence: None)
  Receive Date: 20110720
  Receipt Date: 20101217
  Transmission Date: 20111222
  Serious: Yes (Other)
  Sender: FDA-Public Use
  Company Number: US-BAYER-201018402NA

PATIENT
  Age: 33 Year
  Sex: Female
  Weight: 109 kg

DRUGS (19)
  1. DROSPIRENONE AND ETHINYL ESTRADIOL [Suspect]
     Indication: OVARIAN CYST
     Route: 048
     Dates: start: 20030401, end: 20091115
  2. DROSPIRENONE AND ETHINYL ESTRADIOL [Suspect]
     Indication: MENSTRUATION IRREGULAR
  3. YASMIN [Suspect]
     Indication: MENSTRUATION IRREGULAR
     Dosage: UNK
     Route: 048
     Dates: start: 20050426, end: 20071101
  4. ALBUTEROL INHALER [Concomitant]
  5. ATENOLOL [Concomitant]
     Indication: HYPERTENSION
     Dates: start: 20090101, end: 20100615
  6. IBUPROFEN [Concomitant]
     Indication: PRODUCT USED FOR UNKNOWN INDICATION
     Dosage: UNK UNK, PRN
     Dates: start: 20050606
  7. INDOREL [Concomitant]
     Dates: start: 20020101, end: 20050101
  8. PRILOSEC [Concomitant]
  9. DROSPIRENONE AND ETHINYL ESTRADIOL [Suspect]
     Indication: ORAL CONTRACEPTION
  10. YASMIN [Suspect]
     Indication: OVARIAN CYST
     Dosage: UNK
     Dates: start: 20081111, end: 20091218
  11. ZITHROMAX [Concomitant]
     Dates: start: 20060101
  12. ANAPROX [Concomitant]
     Indication: PRODUCT USED FOR UNKNOWN INDICATION
     Dates: start: 20060222
  13. YASMIN [Suspect]
     Indication: ORAL CONTRACEPTION
     Dosage: UNK
     Dates: start: 20071213, end: 20081029
  14. YAZ [Suspect]
     Indication: PRODUCT USED FOR UNKNOWN INDICATION
     Dosage: AS USED DOSE: UNK
     Route: 048
     Dates: start: 20030101, end: 20091215
  15. LOESTRIN 1.5/30 [Concomitant]
     Indication: ORAL CONTRACEPTION
  16. APAP TAB [Suspect]
     Indication: PAIN
  17. LORTAB [Suspect]
  18. LISINOPRIL [Concomitant]
     Indication: HYPERTENSION
     Dates: start: 20070101
  19. PHENERGAN [Concomitant]

REACTIONS (8)
  - CHOLECYSTITIS CHRONIC [None]
  - CHOLESTEROSIS [None]
  - HEPATOMEGALY [None]
  - VOMITING [None]
  - HEPATIC STEATOSIS [None]
  - DIARRHOEA [None]
  - ABDOMINAL PAIN UPPER [None]
  - CHOLELITHIASIS [None]
